FAERS Safety Report 7331563-4 (Version None)
Quarter: 2011Q1

REPORT INFORMATION
  Report Type: 
  Country: None (occurrence: None)
  Receive Date: 20110228
  Receipt Date: 20110228
  Transmission Date: 20110831
  Serious: No
  Sender: FDA-Public Use
  Company Number: None

PATIENT
  Sex: Male
  Weight: 113.6 kg

DRUGS (1)
  1. VICTOZA [Suspect]
     Indication: DIABETES MELLITUS
     Dosage: 12.MG DAILY SUBCU
     Route: 058
     Dates: start: 20100701

REACTIONS (4)
  - GINGIVAL DISORDER [None]
  - DENTAL CARIES [None]
  - DRY MOUTH [None]
  - TOOTH DISCOLOURATION [None]
